FAERS Safety Report 6786739-1 (Version None)
Quarter: 2010Q2

REPORT INFORMATION
  Report Type: 
  Country: None (occurrence: None)
  Receive Date: 20100623
  Receipt Date: 20100610
  Transmission Date: 20101027
  Serious: Yes (Other)
  Sender: FDA-Public Use
  Company Number: GB-ELI_LILLY_AND_COMPANY-GB201003005976

PATIENT
  Age: 70 Year
  Sex: Female
  Weight: 87 kg

DRUGS (8)
  1. CYMBALTA [Suspect]
     Indication: DEPRESSION
     Dosage: 30 MG, UNKNOWN
     Route: 048
     Dates: start: 20091223, end: 20100103
  2. CYMBALTA [Suspect]
     Dosage: 60 MG, UNKNOWN
     Route: 048
     Dates: start: 20100104, end: 20100302
  3. ASPIRIN [Concomitant]
     Indication: CARDIOVASCULAR DISORDER
     Dosage: 75 MG, UNKNOWN
     Route: 048
  4. BISOPROLOL [Concomitant]
     Indication: MYOCARDIAL ISCHAEMIA
     Dosage: 7.5 MG, 2/D
     Route: 065
  5. ISOSORBIDE [Concomitant]
     Indication: ANGINA PECTORIS
     Dosage: 20 MG, 2/D
     Route: 065
  6. LANSOPRAZOLE [Concomitant]
     Indication: DYSPEPSIA
     Dosage: 30 MG, DAILY (1/D)
     Route: 065
  7. LETROZOLE [Concomitant]
     Indication: BREAST CANCER
     Dosage: 2.5 MG, UNKNOWN
     Route: 048
     Dates: start: 20070101
  8. LEVOTHYROXINE SODIUM [Concomitant]
     Indication: HYPOTHYROIDISM
     Dosage: 125 UG, UNKNOWN
     Route: 048

REACTIONS (1)
  - ALOPECIA [None]
